FAERS Safety Report 22991712 (Version 2)
Quarter: 2024Q1

REPORT INFORMATION
  Report Type: Report from Study
  Country: FR (occurrence: FR)
  Receive Date: 20230927
  Receipt Date: 20240124
  Transmission Date: 20240410
  Serious: Yes (Hospitalization)
  Sender: FDA-Public Use
  Company Number: FR-BAXTER-2023BAX030811

PATIENT
  Age: 73 Year
  Sex: Female
  Weight: 68 kg

DRUGS (13)
  1. PREDNISONE [Suspect]
     Active Substance: PREDNISONE
     Indication: Diffuse large B-cell lymphoma
     Dosage: UNK (DAY 1-5, EVERY 3 WEEKS, EVERY 1 DAY)
     Route: 048
     Dates: start: 20230727
  2. EPCORITAMAB [Suspect]
     Active Substance: EPCORITAMAB
     Indication: Diffuse large B-cell lymphoma
     Dosage: 0.16 MILLIGRAM (16 MILLIGRAM (TOTAL )
     Route: 058
     Dates: start: 20230727
  3. EPCORITAMAB [Suspect]
     Active Substance: EPCORITAMAB
     Dosage: 0.8 MG, INTERMEDIATE DOSE, C1, D8, TOTAL
     Route: 058
     Dates: start: 20230804, end: 20230804
  4. EPCORITAMAB [Suspect]
     Active Substance: EPCORITAMAB
     Dosage: 48 MG, FULL DOSE, C1, D15, TOTAL
     Route: 058
     Dates: start: 20230811, end: 20230811
  5. EPCORITAMAB [Suspect]
     Active Substance: EPCORITAMAB
     Dosage: 0.16 MG, PRIMING DOSE, C1, D1, TOTAL
     Route: 058
     Dates: start: 20230728, end: 20230728
  6. EPCORITAMAB [Suspect]
     Active Substance: EPCORITAMAB
     Dosage: 48 MG, C2-4, D1, 8 + 15, EVERY 1 WEEKS, ONGOING
     Route: 058
     Dates: start: 20230818
  7. CYCLOPHOSPHAMIDE [Suspect]
     Active Substance: CYCLOPHOSPHAMIDE
     Indication: Diffuse large B-cell lymphoma
     Dosage: 1325MG, Q3W (EVERY 3 WEEK)
     Route: 042
     Dates: start: 20230727
  8. VINCRISTINE [Suspect]
     Active Substance: VINCRISTINE
     Indication: Diffuse large B-cell lymphoma
     Dosage: 2 MILLIGRAM, Q3W (EVERY 3 WEEK)
     Route: 042
     Dates: start: 20230727
  9. RITUXIMAB [Suspect]
     Active Substance: RITUXIMAB
     Indication: Diffuse large B-cell lymphoma
     Dosage: UNK UNK, Q3W (EVERY 3 WEEK)
     Route: 042
     Dates: start: 20230727
  10. DOXORUBICIN [Suspect]
     Active Substance: DOXORUBICIN
     Indication: Diffuse large B-cell lymphoma
     Dosage: UNK UNK, Q3W (EVERY 3 WEEK)
     Route: 042
     Dates: start: 20230727
  11. DOXORUBICIN [Suspect]
     Active Substance: DOXORUBICIN
     Dosage: 87.8 MILLIGRAM, Q3W, ONGOING
     Route: 042
     Dates: start: 20230818
  12. DOXORUBICIN [Suspect]
     Active Substance: DOXORUBICIN
     Dosage: 88.4 MILLIGRAM, Q3W
     Route: 042
     Dates: start: 20230727, end: 20230727
  13. PANTOPRAZOLE [Concomitant]
     Active Substance: PANTOPRAZOLE
     Indication: Gastrointestinal disorder prophylaxis
     Dosage: 40 MG, 2/DAYS, START DATE: 2023
     Route: 065

REACTIONS (5)
  - Stomatitis [Not Recovered/Not Resolved]
  - Dehydration [Unknown]
  - Oral pain [Unknown]
  - Odynophagia [Unknown]
  - Off label use [Unknown]

NARRATIVE: CASE EVENT DATE: 20230828
